FAERS Safety Report 9854250 (Version 1)
Quarter: 2014Q1

REPORT INFORMATION
  Report Type: Report from Study
  Country: DE (occurrence: DE)
  Receive Date: 20140130
  Receipt Date: 20140130
  Transmission Date: 20141002
  Serious: Yes (Other)
  Sender: FDA-Public Use
  Company Number: DE-BEH-2014040398

PATIENT
  Age: 72 Year
  Sex: Male
  Weight: 76 kg

DRUGS (30)
  1. PRIVIGEN [Suspect]
     Dosage: 30 G IN TOTAL OF BOTH BATCH NUMBERS; INFUSION RATE MIN/MAX. 0.3/4.8 ML/MIN
     Route: 042
     Dates: start: 20130704, end: 20130704
  2. PRIVIGEN [Suspect]
     Dosage: 30 G IN TOTAL OF BOTH BATCH NUMBERS; INFUSION RATE MIN/MAX. 0.3/4.8 ML/MIN
     Route: 042
     Dates: start: 20130704, end: 20130704
  3. PRIVIGEN [Suspect]
     Dosage: 30 G IN TOTAL OF BOTH BATCH NUMBERS; INFUSION RATE MIN/MAX. 0.3/4.8 ML/MIN
     Route: 042
     Dates: start: 20130815, end: 20130815
  4. PRIVIGEN [Suspect]
     Indication: MANTLE CELL LYMPHOMA
     Dosage: 30 G IN TOTAL OF BOTH BATCH NUMBERS; INFUSION RATE MIN/MAX. 0.3/4.8 ML/MIN
     Route: 042
     Dates: start: 20130815, end: 20130815
  5. PRIVIGEN [Suspect]
     Indication: HYPOGAMMAGLOBULINAEMIA
     Dosage: 30 G IN TOTAL OF BOTH BATCH NUMBERS; INFUSION RATE MIN/MAX. 0.3/4.8 ML/MIN
     Route: 042
     Dates: start: 20130912, end: 20130912
  6. PRIVIGEN [Suspect]
     Dosage: 30 G IN TOTAL OF BOTH BATCH NUMBERS; INFUSION RATE MIN/MAX. 0.3/4.8 ML/MIN
     Route: 042
     Dates: start: 20130912, end: 20130912
  7. PRIVIGEN [Suspect]
     Dosage: 30 G IN TOTAL OF BOTH BATCH NUMBERS; INFUSION RATE MIN/MAX. 0.3/4.8 ML/MIN
     Route: 042
     Dates: start: 20131009, end: 20131009
  8. PRIVIGEN [Suspect]
     Indication: SECONDARY IMMUNODEFICIENCY
     Dosage: 30 G IN TOTAL OF BOTH BATCH NUMBERS; INFUSION RATE MIN/MAX. 0.3/4.8 ML/MIN
     Route: 042
     Dates: start: 20131009, end: 20131009
  9. PRIVIGEN [Suspect]
     Dosage: 30 G IN TOTAL OF BOTH BATCH NUMBERS; INFUSION RATE MIN/MAX. 0.3/4.8 ML/MIN
     Route: 042
     Dates: start: 20131028, end: 20131028
  10. PRIVIGEN [Suspect]
     Dosage: 30 G IN TOTAL OF BOTH BATCH NUMBERS; INFUSION RATE MIN/MAX. 0.3/4.8 ML/MIN
     Route: 042
     Dates: start: 20131028, end: 20131028
  11. PRIVIGEN [Suspect]
     Dosage: 30 G IN TOTAL OF BOTH BATCH NUMBERS; INFUSION RATE MIN/MAX. 0.3/4.8 ML/MIN
     Route: 042
     Dates: start: 20131119, end: 20131119
  12. PRIVIGEN [Suspect]
     Dosage: 30 G IN TOTAL OF BOTH BATCH NUMBERS; INFUSION RATE MIN/MAX. 0.3/4.8 ML/MIN
     Route: 042
     Dates: start: 20131119, end: 20131119
  13. PANTOZOL [Concomitant]
     Dosage: 1-0-0
  14. NABI [Concomitant]
     Dosage: 1-1-1
  15. COTRIM 960 [Concomitant]
     Dosage: 1-0-0, ONLY ON MONDAYS AND THURSDAYS
  16. TOREM [Concomitant]
     Dosage: 1-0-0
  17. DEXAMETHASONE [Concomitant]
     Dosage: 1-0-0
  18. MCP [Concomitant]
     Dosage: 3 X 20 DROPS
  19. ACC [Concomitant]
     Dosage: 1-0-0
  20. MST [Concomitant]
  21. ACICLOVIR [Concomitant]
     Dosage: 1-0-0
  22. NORMALIP PRO [Concomitant]
     Dosage: 1-0-0
  23. RITUXIMAB [Concomitant]
     Dates: start: 20120727
  24. BORTEZUMIB [Concomitant]
     Dates: start: 20120727
  25. PARACETAMOL [Concomitant]
     Indication: PREMEDICATION
     Dates: start: 20130704, end: 20130704
  26. PARACETAMOL [Concomitant]
     Dates: start: 20130815, end: 20130815
  27. PARACETAMOL [Concomitant]
     Dates: start: 20130912, end: 20130912
  28. PARACETAMOL [Concomitant]
     Dates: start: 20131009, end: 20131009
  29. PARACETAMOL [Concomitant]
     Dates: start: 20131028, end: 20131028
  30. PARACETAMOL [Concomitant]
     Dates: start: 20131119, end: 20131119

REACTIONS (2)
  - Escherichia sepsis [Recovered/Resolved]
  - Escherichia test positive [Recovered/Resolved]
